FAERS Safety Report 10376798 (Version 1)
Quarter: 2014Q1

REPORT INFORMATION
  Report Type: Spontaneous
  Country: US (occurrence: None)
  Receive Date: 20140306
  Receipt Date: 20140306
  Transmission Date: 20141002
  Serious: Yes (Other)
  Sender: FDA-Public Use
  Company Number: 163-21880-13040114

PATIENT
  Age: 68 Year
  Sex: Male

DRUGS (11)
  1. REVLIMID (LENALIDOMIDE) (25 MILLIGRAM, CAPSULES) [Suspect]
     Indication: PLASMA CELL MYELOMA
     Dosage: 25 MG, 21 IN 21 D,PO
     Route: 048
     Dates: start: 20130314
  2. AZOR (ALPRAZOLAM) (UNKNOWN) [Concomitant]
  3. EFFIENT (PRASUGREL HYDROCHLORIDE) (UNKNOWN) [Concomitant]
  4. GLIPIZIDE (GLIPIZIDE) (UNKNOWN) [Concomitant]
  5. HYDROCODONE/ACETAMINOPHEN (REMEDEINE) (UNKNOWN) [Concomitant]
  6. METFORMIN HCL (METFORMIN HYDROCHLORIDE) (UNKNOWN) [Concomitant]
  7. ROBAXIN (METHOCARBAMOL) (UNKNOWN) [Concomitant]
  8. TEMAZEPAM (TEMAZEPAM) (UNKNOWN) [Concomitant]
  9. VITAMIN B12 (CYANOCOBALAMIN) (UNKNOWN) [Concomitant]
  10. AMLODIPINE BESYLATE (AMLODIPINE BESILATE) (UNKNOWN) [Concomitant]
  11. LISINOPRIL (LISINOPRIL) (UNKNOWN) (LISINOPRIL) [Concomitant]

REACTIONS (4)
  - Stevens-Johnson syndrome [None]
  - Asthenia [None]
  - Rash [None]
  - Rash pruritic [None]
